FAERS Safety Report 23624198 (Version 1)
Quarter: 2024Q1

REPORT INFORMATION
  Report Type: Spontaneous
  Country: US (occurrence: US)
  Receive Date: 20240312
  Receipt Date: 20240312
  Transmission Date: 20240410
  Serious: Yes (Other)
  Sender: FDA-Public Use
  Company Number: US-SANDOZ-SDZ2024US026165

PATIENT
  Age: 66 Year
  Sex: Female
  Weight: 68.027 kg

DRUGS (1)
  1. RECLAST [Suspect]
     Active Substance: ZOLEDRONIC ACID
     Indication: Osteoporosis
     Dosage: UNK, ONE SINGLE DOSE
     Route: 042
     Dates: start: 20230626

REACTIONS (6)
  - Sepsis [Unknown]
  - Urinary tract infection [Unknown]
  - Cystitis noninfective [Not Recovered/Not Resolved]
  - Arthralgia [Not Recovered/Not Resolved]
  - Asthma [Unknown]
  - Dysphagia [Unknown]

NARRATIVE: CASE EVENT DATE: 20230627
